FAERS Safety Report 23567070 (Version 1)
Quarter: 2024Q1

REPORT INFORMATION
  Report Type: Spontaneous
  Country: US (occurrence: US)
  Receive Date: 20240226
  Receipt Date: 20240226
  Transmission Date: 20240410
  Serious: No
  Sender: FDA-Public Use
  Company Number: US-AMNEAL PHARMACEUTICALS-2023-AMRX-04440

PATIENT
  Sex: Male

DRUGS (3)
  1. RYTARY [Suspect]
     Active Substance: CARBIDOPA\LEVODOPA
     Indication: Product used for unknown indication
     Dosage: (48.75/195 MG) 3 CAPSULES, 3 /DAY EVERY 5 HOURS
     Route: 048
  2. RYTARY [Suspect]
     Active Substance: CARBIDOPA\LEVODOPA
     Dosage: (48.75/195 MG) 1 CAPSULES, 3 /DAY 5 HOURS APART
     Route: 048
     Dates: start: 20240207
  3. RYTARY [Suspect]
     Active Substance: CARBIDOPA\LEVODOPA
     Dosage: (48.75/195 MG) 3 CAPSULES, 3 /DAY
     Route: 048
     Dates: start: 20240212

REACTIONS (2)
  - Throat irritation [Unknown]
  - Panic attack [Unknown]
